FAERS Safety Report 8899943 (Version 2)
Quarter: 2013Q1

REPORT INFORMATION
  Report Type: Spontaneous
  Country: US (occurrence: US)
  Receive Date: 20121108
  Receipt Date: 20130227
  Transmission Date: 20140127
  Serious: No
  Sender: FDA-Public Use
  Company Number: US-009507513-1210USA011841

PATIENT
  Age: 19 Year
  Sex: Female
  Weight: 63.39 kg

DRUGS (1)
  1. IMPLANON [Suspect]
     Indication: CONTRACEPTION
     Dosage: UNK
     Route: 059
     Dates: start: 20110720, end: 20121018

REACTIONS (3)
  - Implant site fibrosis [Unknown]
  - Implant site scar [Unknown]
  - Device difficult to use [Recovered/Resolved]
